FAERS Safety Report 8570900 (Version 6)
Quarter: 2015Q3

REPORT INFORMATION
  Report Type: Spontaneous
  Country: US (occurrence: US)
  Receive Date: 20120521
  Receipt Date: 20150811
  Transmission Date: 20151125
  Serious: Yes (Other)
  Sender: FDA-Public Use
  Company Number: US-ASTRAZENECA-2012SE20199

PATIENT
  Age: 88 Year
  Sex: Female
  Weight: 56.7 kg

DRUGS (9)
  1. SYMBICORT [Suspect]
     Active Substance: BUDESONIDE\FORMOTEROL FUMARATE DIHYDRATE
     Indication: DYSPNOEA
     Dosage: 160/4.5, ONLY USED 3 OR 4 TIMES, FREQUENCY UNKNOWN
     Route: 055
     Dates: start: 201203, end: 201203
  2. SYMBICORT [Suspect]
     Active Substance: BUDESONIDE\FORMOTEROL FUMARATE DIHYDRATE
     Indication: NASOPHARYNGITIS
     Dosage: 160/4.5, ONLY USED 3 OR 4 TIMES, FREQUENCY UNKNOWN
     Route: 055
     Dates: start: 201203, end: 201203
  3. LEVOXINE [Concomitant]
     Active Substance: LEVOTHYROXINE SODIUM
     Indication: THYROID THERAPY
  4. METOPROLOL [Concomitant]
     Active Substance: METOPROLOL
  5. LEVOFLOXACIN. [Concomitant]
     Active Substance: LEVOFLOXACIN
     Indication: ANTIBIOTIC THERAPY
  6. LEVALBUTEROL. [Concomitant]
     Active Substance: LEVALBUTEROL
  7. SYMBICORT [Suspect]
     Active Substance: BUDESONIDE\FORMOTEROL FUMARATE DIHYDRATE
     Indication: BRONCHIECTASIS
     Dosage: 160/4.5, ONLY USED 3 OR 4 TIMES, FREQUENCY UNKNOWN
     Route: 055
     Dates: start: 201203, end: 201203
  8. BUDESONIDE. [Suspect]
     Active Substance: BUDESONIDE
     Route: 055
  9. SIMVASTATIN. [Concomitant]
     Active Substance: SIMVASTATIN

REACTIONS (2)
  - Fatigue [Unknown]
  - Cataract [Unknown]
